FAERS Safety Report 7546531-7 (Version None)
Quarter: 2011Q2

REPORT INFORMATION
  Report Type: 
  Country: None (occurrence: None)
  Receive Date: 20110614
  Receipt Date: 20110516
  Transmission Date: 20111010
  Serious: Yes (Other)
  Sender: FDA-Public Use
  Company Number: US-BAYER-2011-018374

PATIENT
  Age: 18 Year
  Sex: Female
  Weight: 72 kg

DRUGS (9)
  1. HYDROCODONE BITARTRATE [Concomitant]
  2. YASMIN [Suspect]
     Indication: MENSTRUATION IRREGULAR
     Dosage: UNK
     Dates: start: 20081204, end: 20091204
  3. CIPROFLOXACIN HCL [Concomitant]
     Dosage: UNK
     Dates: start: 20090119
  4. YASMIN [Suspect]
     Indication: CONTRACEPTION
     Dosage: UNK
     Route: 048
     Dates: start: 20051121, end: 20070218
  5. VICODIN [Concomitant]
     Dosage: UNK
     Dates: start: 20090119
  6. PROMETHAZINE [Concomitant]
     Dosage: UNK
     Dates: start: 20090119
  7. YAZ [Suspect]
     Indication: CONTRACEPTION
     Dosage: UNK
     Route: 048
     Dates: start: 20070218, end: 20081204
  8. YAZ [Suspect]
     Indication: MENSTRUATION IRREGULAR
  9. LEVSIN [Concomitant]

REACTIONS (2)
  - CHOLECYSTITIS [None]
  - GALLBLADDER DISORDER [None]
